FAERS Safety Report 11349569 (Version 1)
Quarter: 2015Q3

REPORT INFORMATION
  Report Type: Spontaneous
  Country: US (occurrence: None)
  Receive Date: 20150805
  Receipt Date: 20150805
  Transmission Date: 20151125
  Serious: Yes (Other)
  Sender: FDA-Public Use
  Company Number: HA15-208-AE

PATIENT
  Sex: Female

DRUGS (1)
  1. RANITIDINE HCL TABLETS (I) [Suspect]
     Active Substance: RANITIDINE HYDROCHLORIDE

REACTIONS (10)
  - Medical device site pain [None]
  - Stress [None]
  - Cardiac discomfort [None]
  - Haemorrhoid infection [None]
  - Haemorrhoids [None]
  - Rectal haemorrhage [None]
  - Activities of daily living impaired [None]
  - Blood pressure increased [None]
  - Anaemia [None]
  - Depression [None]
